FAERS Safety Report 13056741 (Version 1)
Quarter: 2016Q4

REPORT INFORMATION
  Report Type: Spontaneous
  Country: US (occurrence: US)
  Receive Date: 20161222
  Receipt Date: 20161222
  Transmission Date: 20170207
  Serious: No
  Sender: FDA-Public Use
  Company Number: US-BIOMARINAP-US-2016-109674

PATIENT
  Age: 23 Year
  Sex: Male
  Weight: 58 kg

DRUGS (1)
  1. NAGLAZYME [Suspect]
     Active Substance: GALSULFASE
     Indication: MUCOPOLYSACCHARIDOSIS
     Dosage: 60 MG, QW
     Route: 042
     Dates: start: 20110420

REACTIONS (5)
  - Discomfort [Unknown]
  - Infusion site extravasation [Unknown]
  - Feeling cold [Unknown]
  - Peripheral swelling [Unknown]
  - Poor venous access [Unknown]

NARRATIVE: CASE EVENT DATE: 20160428
